FAERS Safety Report 24377376 (Version 1)
Quarter: 2024Q3

REPORT INFORMATION
  Report Type: Spontaneous
  Country: US (occurrence: US)
  Receive Date: 20240930
  Receipt Date: 20240930
  Transmission Date: 20241017
  Serious: Yes (Other)
  Sender: EMD SERONO INC
  Company Number: US-Merck Healthcare KGaA-2024050852

PATIENT
  Sex: Female

DRUGS (1)
  1. REBIF [Suspect]
     Active Substance: INTERFERON BETA-1A
     Indication: Multiple sclerosis
     Route: 058
     Dates: start: 202011

REACTIONS (5)
  - Depressed level of consciousness [Unknown]
  - Disturbance in attention [Unknown]
  - Performance status decreased [Unknown]
  - Asthenia [Unknown]
  - Fatigue [Unknown]
